FAERS Safety Report 11845041 (Version 1)
Quarter: 2015Q4

REPORT INFORMATION
  Report Type: Spontaneous
  Country: FI (occurrence: FI)
  Receive Date: 20151217
  Receipt Date: 20151217
  Transmission Date: 20160305
  Serious: Yes (Hospitalization)
  Sender: FDA-Public Use
  Company Number: FI-JNJFOC-20151213336

PATIENT
  Sex: Female

DRUGS (12)
  1. FERROUS GLYCINE SULFATE [Concomitant]
     Active Substance: FERROUS SULFATE\GLYCINE
     Route: 065
     Dates: start: 20150806
  2. XARELTO [Suspect]
     Active Substance: RIVAROXABAN
     Indication: PULMONARY EMBOLISM
     Route: 048
     Dates: start: 20150717, end: 20151112
  3. VENTOLINE [Concomitant]
     Active Substance: ALBUTEROL
     Route: 065
  4. INNOHEP [Concomitant]
     Active Substance: TINZAPARIN SODIUM
     Route: 065
  5. PARACETAMOL [Concomitant]
     Active Substance: ACETAMINOPHEN
     Route: 065
  6. FOLIC ACID. [Concomitant]
     Active Substance: FOLIC ACID
     Route: 065
     Dates: start: 20141002
  7. SALAZOPYRIN [Concomitant]
     Active Substance: SULFASALAZINE
     Indication: POLYARTHRITIS
     Route: 065
     Dates: start: 20150711
  8. CYANOCOBALAMIN. [Concomitant]
     Active Substance: CYANOCOBALAMIN
     Route: 065
     Dates: start: 20150716
  9. OXIKLORIN [Concomitant]
     Active Substance: HYDROXYCHLOROQUINE SULFATE
     Indication: POLYARTHRITIS
     Dosage: 300 MG SIX DAYS A WEEK
     Route: 065
     Dates: start: 20140331
  10. XARELTO [Suspect]
     Active Substance: RIVAROXABAN
     Indication: EMBOLISM VENOUS
     Route: 048
     Dates: start: 20150717, end: 20151112
  11. SOMAC [Concomitant]
     Active Substance: PANTOPRAZOLE SODIUM
     Indication: PROPHYLAXIS AGAINST GASTROINTESTINAL ULCER
     Route: 065
     Dates: start: 20150724
  12. ASA [Concomitant]
     Active Substance: ASPIRIN
     Indication: THROMBOSIS PROPHYLAXIS
     Route: 065
     Dates: start: 20150724

REACTIONS (2)
  - Arthralgia [Unknown]
  - Deep vein thrombosis [Unknown]
